FAERS Safety Report 9282532 (Version 1)
Quarter: 2013Q2

REPORT INFORMATION
  Report Type: Spontaneous
  Country: US (occurrence: US)
  Receive Date: 20130510
  Receipt Date: 20130510
  Transmission Date: 20140414
  Serious: Yes (Disabling)
  Sender: FDA-Public Use
  Company Number: US-PFIZER INC-2013145003

PATIENT
  Age: 47 Year
  Sex: Female
  Weight: 99.77 kg

DRUGS (2)
  1. LYRICA [Suspect]
     Indication: BLADDER DISORDER
     Dosage: 300 MG/DAY
     Route: 048
     Dates: start: 2004
  2. LEVOTHROID [Concomitant]
     Indication: HYPOTHYROIDISM
     Dosage: 150 UG, 1X/DAY

REACTIONS (2)
  - Fibromyalgia [Unknown]
  - Off label use [Unknown]
